FAERS Safety Report 19678718 (Version 1)
Quarter: 2021Q3

REPORT INFORMATION
  Report Type: Report from Study
  Country: US (occurrence: US)
  Receive Date: 20210810
  Receipt Date: 20210810
  Transmission Date: 20211014
  Serious: Yes (Other)
  Sender: FDA-Public Use
  Company Number: US-ROCHE-2885249

PATIENT

DRUGS (1)
  1. COBIMETINIB. [Suspect]
     Active Substance: COBIMETINIB
     Indication: HISTIOCYTIC SARCOMA
     Dosage: DAILY FOR 21 DAYS ON, THEN 7 DAYS OFF, IN A 28 DAY TREATMENT CYCLE.
     Route: 065

REACTIONS (1)
  - Retinal vascular disorder [Unknown]
